FAERS Safety Report 7703419-6 (Version None)
Quarter: 2011Q3

REPORT INFORMATION
  Report Type: 
  Country: None (occurrence: None)
  Receive Date: 20110823
  Receipt Date: 20110823
  Transmission Date: 20111222
  Serious: No
  Sender: FDA-Public Use
  Company Number: None

PATIENT
  Age: 53 Year
  Sex: Female
  Weight: 61.234 kg

DRUGS (1)
  1. DORZOLAMIDE HYDROCHLORIDE AND TIMOLOL MALEATE [Suspect]
     Indication: GLAUCOMA
     Dosage: 1 DROP
     Route: 047
     Dates: start: 20110730, end: 20110822

REACTIONS (3)
  - LIQUID PRODUCT PHYSICAL ISSUE [None]
  - EYE IRRITATION [None]
  - PRODUCT DEPOSIT [None]
